FAERS Safety Report 6181027-9 (Version None)
Quarter: 2009Q2

REPORT INFORMATION
  Report Type: 
  Country: None (occurrence: None)
  Receive Date: 20090506
  Receipt Date: 20090427
  Transmission Date: 20091009
  Serious: Yes (Hospitalization)
  Sender: FDA-Public Use
  Company Number: CA-ELI_LILLY_AND_COMPANY-CA200903007854

PATIENT
  Sex: Male

DRUGS (22)
  1. ZYPREXA ZYDIS [Suspect]
     Indication: PSYCHOTIC DISORDER
     Dosage: 10 MG, 2/D
     Route: 048
     Dates: start: 20081008, end: 20081029
  2. ZYPREXA ZYDIS [Suspect]
     Dosage: 5 MG, 2/D
     Dates: start: 20090310
  3. ZYPREXA ZYDIS [Suspect]
     Dosage: 10 MG, 2/D
     Dates: start: 20090327
  4. ZYPREXA ZYDIS [Suspect]
     Dosage: 5 MG, 2/D
     Dates: start: 20090427
  5. SEROQUEL [Concomitant]
     Dates: start: 20081027, end: 20081029
  6. SEROQUEL [Concomitant]
     Dates: start: 20081104, end: 20081106
  7. RISPERDAL [Concomitant]
     Dates: end: 20081029
  8. CLOZARIL [Concomitant]
     Dates: start: 20081113, end: 20081116
  9. FLOMAX [Concomitant]
  10. OMEPRAZOLE [Concomitant]
  11. TRAZODONE HCL [Concomitant]
  12. ATARAX [Concomitant]
  13. DOMPERIDONE [Concomitant]
  14. CLONAZEPAM [Concomitant]
  15. CLAVULIN [Concomitant]
  16. REMERON [Concomitant]
  17. NOCTEC [Concomitant]
  18. VALIUM [Concomitant]
  19. NEURONTIN [Concomitant]
  20. CIPROFLOXACIN HCL [Concomitant]
  21. PYRIDIUM [Concomitant]
  22. LITHIUM CARBONATE [Concomitant]

REACTIONS (2)
  - ABNORMAL BEHAVIOUR [None]
  - NEUROLEPTIC MALIGNANT SYNDROME [None]
